FAERS Safety Report 6115306-8 (Version None)
Quarter: 2009Q1

REPORT INFORMATION
  Report Type: 
  Country: None (occurrence: None)
  Receive Date: 20090313
  Receipt Date: 20090304
  Transmission Date: 20090719
  Serious: Yes (Death, Hospitalization)
  Sender: FDA-Public Use
  Company Number: SE-AVENTIS-200911203GDDC

PATIENT
  Age: 58 Year
  Sex: Female

DRUGS (6)
  1. TAXOTERE [Suspect]
     Dates: start: 20090121, end: 20090121
  2. FLUOROURACIL [Concomitant]
     Dates: start: 20081107
  3. EPIRUBICIN [Concomitant]
     Dates: start: 20081107
  4. CYCLOPHOSPHAMIDE [Concomitant]
     Dates: start: 20081107
  5. TROMBYL [Concomitant]
     Dates: start: 20081222, end: 20081222
  6. TROMBYL [Concomitant]
     Dates: start: 20081223

REACTIONS (3)
  - LIVER FUNCTION TEST ABNORMAL [None]
  - PULMONARY HAEMORRHAGE [None]
  - PULMONARY OEDEMA [None]
